FAERS Safety Report 15967041 (Version 3)
Quarter: 2019Q1

REPORT INFORMATION
  Report Type: Report from Study
  Country: ZA (occurrence: ZA)
  Receive Date: 20190215
  Receipt Date: 20190314
  Transmission Date: 20190418
  Serious: Yes (Hospitalization)
  Sender: FDA-Public Use
  Company Number: ZA-SA-2018SA286152

PATIENT
  Age: 71 Year
  Sex: Male

DRUGS (10)
  1. INSULIN GLULISINE [Suspect]
     Active Substance: INSULIN GLULISINE
     Dosage: UNK UNK, UNK
  2. OPTISULIN (INSULIN GLARGINE) [Suspect]
     Active Substance: INSULIN GLARGINE
     Dosage: 16 U, QD
     Dates: start: 20180913
  3. PIOGLITAZONE. [Concomitant]
     Active Substance: PIOGLITAZONE
     Dosage: AFTER BREAKFAST-30 MG
     Dates: start: 20190202
  4. OPTISULIN (INSULIN GLARGINE) [Suspect]
     Active Substance: INSULIN GLARGINE
     Dosage: 20 U, HS (BED TIME)
     Dates: start: 20190202
  5. VILDAGLIPTIN [Suspect]
     Active Substance: VILDAGLIPTIN
     Dosage: 50 MG BB AND 50 MG BD
  6. DIAGLUCIDE [Concomitant]
     Active Substance: GLICLAZIDE
     Dosage: 60 MG, QD
     Dates: start: 20180814
  7. GALVUS [Concomitant]
     Active Substance: VILDAGLIPTIN
     Dosage: AFTER SUPPER-60 MG, AFTER BREAKFAST-60 MG, BID
     Dates: start: 20180814
  8. DIAGLUCIDE [Concomitant]
     Active Substance: GLICLAZIDE
     Dosage: AFTER SUPPER-60 MG, AFTER BREAKFAST-60 MG
     Dates: start: 20190202
  9. OPTISULIN (INSULIN GLARGINE) [Suspect]
     Active Substance: INSULIN GLARGINE
     Indication: TYPE 2 DIABETES MELLITUS
     Dosage: 10 IU, QD
     Dates: start: 20180814
  10. HUMALOG MIX [Concomitant]
     Active Substance: INSULIN LISPRO
     Dosage: BEFORE SUPPER-8 UNITS  BEFORE BREAKFAST-15 UNITS
     Dates: start: 20190117

REACTIONS (6)
  - Rash pruritic [Recovering/Resolving]
  - Back pain [Not Recovered/Not Resolved]
  - Diarrhoea [Recovered/Resolved]
  - Somnolence [Unknown]
  - Skin disorder [Recovered/Resolved]
  - Pain in extremity [Unknown]

NARRATIVE: CASE EVENT DATE: 201810
